FAERS Safety Report 4390491-7 (Version None)
Quarter: 2004Q2

REPORT INFORMATION
  Report Type: 
  Country: None (occurrence: None)
  Receive Date: 20040630
  Receipt Date: 20040615
  Transmission Date: 20050107
  Serious: Yes (Death)
  Sender: FDA-Public Use
  Company Number: DSA_24571_2004

PATIENT
  Age: 9 Month

DRUGS (1)
  1. RONDEC DM [Suspect]

REACTIONS (1)
  - DEATH [None]
